FAERS Safety Report 7934067-0 (Version None)
Quarter: 2011Q4

REPORT INFORMATION
  Report Type: 
  Country: None (occurrence: None)
  Receive Date: 20111122
  Receipt Date: 20111108
  Transmission Date: 20120403
  Serious: Yes (Other)
  Sender: FDA-Public Use
  Company Number: PL-ROCHE-791701

PATIENT
  Sex: Female

DRUGS (5)
  1. LETROZOLE [Concomitant]
     Indication: BREAST CANCER
     Route: 048
  2. HERCEPTIN [Suspect]
     Indication: BREAST CANCER
     Dosage: 3 RD CYCLE COMMENCED IN MAY 2011.
     Route: 042
     Dates: start: 20110124, end: 20110329
  3. TAXOTERE [Concomitant]
  4. GLIBETIC [Concomitant]
     Indication: DIABETES MELLITUS
     Route: 048
  5. METFORMAX [Concomitant]

REACTIONS (2)
  - SICK SINUS SYNDROME [None]
  - ARRHYTHMIA [None]
